FAERS Safety Report 17239411 (Version 3)
Quarter: 2020Q1

REPORT INFORMATION
  Report Type: Spontaneous
  Country: US (occurrence: US)
  Receive Date: 20200106
  Receipt Date: 20200306
  Transmission Date: 20200409
  Serious: No
  Sender: FDA-Public Use
  Company Number: US-009507513-2001USA000627

PATIENT
  Age: 17 Year
  Sex: Female
  Weight: 46.71 kg

DRUGS (1)
  1. NUVARING [Suspect]
     Active Substance: ETHINYL ESTRADIOL\ETONOGESTREL
     Indication: CONTRACEPTION
     Dosage: 1 RING EVERY 21 DAYS
     Route: 067
     Dates: start: 20191229

REACTIONS (4)
  - Device expulsion [Unknown]
  - Medical device site pain [Recovered/Resolved]
  - Medical device site haemorrhage [Recovered/Resolved]
  - Product quality issue [Unknown]

NARRATIVE: CASE EVENT DATE: 20191229
